FAERS Safety Report 21234724 (Version 4)
Quarter: 2022Q3

REPORT INFORMATION
  Report Type: Report from Study
  Country: DE (occurrence: DE)
  Receive Date: 20220820
  Receipt Date: 20220927
  Transmission Date: 20221026
  Serious: Yes (Hospitalization)
  Sender: FDA-Public Use
  Company Number: DE-SA-SAC20220812001136

PATIENT
  Age: 52 Year
  Sex: Female

DRUGS (14)
  1. ALEMTUZUMAB [Suspect]
     Active Substance: ALEMTUZUMAB
     Indication: Multiple sclerosis
     Dosage: 12 MG
     Route: 042
     Dates: start: 20180130, end: 20180202
  2. ALEMTUZUMAB [Suspect]
     Active Substance: ALEMTUZUMAB
     Dosage: 12 MG
     Route: 042
     Dates: start: 20170206, end: 20170213
  3. CITALOPRAM [Concomitant]
     Active Substance: CITALOPRAM HYDROBROMIDE
     Indication: Depression
     Dosage: 10 MG IU
  4. CITALOPRAM [Concomitant]
     Active Substance: CITALOPRAM HYDROBROMIDE
     Dosage: 12MG
  5. CITALOPRAM [Concomitant]
     Active Substance: CITALOPRAM HYDROBROMIDE
  6. CITALOPRAM [Concomitant]
     Active Substance: CITALOPRAM HYDROBROMIDE
     Dosage: 12MG
  7. GABAPENTIN [Concomitant]
     Active Substance: GABAPENTIN
     Dosage: 100 MG IU
     Dates: start: 20170314
  8. GABAPENTIN [Concomitant]
     Active Substance: GABAPENTIN
     Dosage: 12MG
  9. DALFAMPRIDINE [Concomitant]
     Active Substance: DALFAMPRIDINE
     Dosage: 10 MG IU
     Dates: start: 20170314
  10. L DOPA [Concomitant]
     Active Substance: LEVODOPA
     Dosage: 100 MG IU
     Dates: start: 20171102
  11. BACLOFEN [Concomitant]
     Active Substance: BACLOFEN
     Dosage: 10 MG IU
     Dates: start: 20180124
  12. NABIXIMOLS [Concomitant]
     Active Substance: NABIXIMOLS
     Dosage: UNK IU, PRN
     Dates: start: 20170314, end: 20171102
  13. NABIXIMOLS [Concomitant]
     Active Substance: NABIXIMOLS
     Dosage: 5-6 PUFFS IU
     Dates: start: 20171102, end: 20180124
  14. TOLPERISONE [Concomitant]
     Active Substance: TOLPERISONE
     Dosage: 50 MG IU
     Dates: start: 20170411

REACTIONS (11)
  - Lymphopenia [Recovered/Resolved]
  - Pyrexia [Recovered/Resolved]
  - Influenza [Unknown]
  - Pyrexia [Unknown]
  - Influenza [Recovered/Resolved]
  - Nasopharyngitis [Recovered/Resolved]
  - Influenza [Recovered/Resolved]
  - Cough [Recovered/Resolved]
  - Nasopharyngitis [Recovered/Resolved]
  - Rhinorrhoea [Recovered/Resolved]
  - Influenza [Recovered/Resolved]

NARRATIVE: CASE EVENT DATE: 20180207
